FAERS Safety Report 5789227-4 (Version None)
Quarter: 2008Q2

REPORT INFORMATION
  Report Type: 
  Country: None (occurrence: None)
  Receive Date: 20080626
  Receipt Date: 20080128
  Transmission Date: 20081010
  Serious: No
  Sender: FDA-Public Use
  Company Number: US-ASTRAZENECA-2008UW01928

PATIENT
  Age: 4 Year
  Sex: Female

DRUGS (1)
  1. PULMICORT RESPULES [Suspect]
     Indication: MULTIPLE ALLERGIES
     Route: 055
     Dates: start: 20070101

REACTIONS (1)
  - MOOD ALTERED [None]
